FAERS Safety Report 19786303 (Version 1)
Quarter: 2021Q3

REPORT INFORMATION
  Report Type: Spontaneous
  Country: CN (occurrence: CN)
  Receive Date: 20210903
  Receipt Date: 20210903
  Transmission Date: 20211014
  Serious: Yes (Other)
  Sender: FDA-Public Use
  Company Number: CN-ASTRAZENECA-2021A704710

PATIENT
  Age: 26298 Day
  Sex: Male
  Weight: 65 kg

DRUGS (3)
  1. PULMICORT RESPULES [Suspect]
     Active Substance: BUDESONIDE
     Indication: INFLAMMATION
     Route: 055
     Dates: start: 20210823, end: 20210823
  2. BOSHUANG (ACETYLCYSTEINE) [Suspect]
     Active Substance: ACETYLCYSTEINE
     Indication: SPUTUM ABNORMAL
     Route: 055
     Dates: start: 20210823, end: 20210823
  3. PULMICORT RESPULES [Suspect]
     Active Substance: BUDESONIDE
     Indication: WHEEZING
     Route: 055
     Dates: start: 20210823, end: 20210823

REACTIONS (2)
  - Breath holding [Recovering/Resolving]
  - Dyspnoea [Recovering/Resolving]

NARRATIVE: CASE EVENT DATE: 20210823
